FAERS Safety Report 4999500-5 (Version None)
Quarter: 2006Q2

REPORT INFORMATION
  Report Type: 
  Country: None (occurrence: None)
  Receive Date: 20060509
  Receipt Date: 20060428
  Transmission Date: 20061013
  Serious: No
  Sender: FDA-Public Use
  Company Number: 221771

PATIENT
  Age: 53 Year
  Sex: Female

DRUGS (10)
  1. AVASTIN [Suspect]
     Indication: BREAST CANCER
     Dosage: 300 MG, Q2W, INTRAVENOUS
     Route: 042
     Dates: start: 20050722, end: 20051118
  2. TAXOL [Concomitant]
  3. ZOMETA [Concomitant]
  4. FEMARA [Concomitant]
  5. HYDROCODNE (HYDROCODONE BITARTRATE) [Concomitant]
  6. KYTRIL [Concomitant]
  7. TAGAMET [Concomitant]
  8. DECADRON SRC [Concomitant]
  9. ACETAMINOPHEN [Concomitant]
  10. SALINE (SODIUM CHLORIDE) [Concomitant]

REACTIONS (13)
  - ALANINE AMINOTRANSFERASE INCREASED [None]
  - ANTIMITOCHONDRIAL ANTIBODY POSITIVE [None]
  - ASPARTATE AMINOTRANSFERASE INCREASED [None]
  - BLOOD ALKALINE PHOSPHATASE INCREASED [None]
  - BLOOD BILIRUBIN INCREASED [None]
  - BLOOD CALCIUM INCREASED [None]
  - BLOOD GLUCOSE DECREASED [None]
  - DISEASE PROGRESSION [None]
  - EPISTAXIS [None]
  - HAEMATOCRIT INCREASED [None]
  - NASAL SEPTUM DEVIATION [None]
  - NASAL SEPTUM PERFORATION [None]
  - RED BLOOD CELL SEDIMENTATION RATE INCREASED [None]
